FAERS Safety Report 20487824 (Version 1)
Quarter: 2022Q1

REPORT INFORMATION
  Report Type: Spontaneous
  Country: IL (occurrence: IL)
  Receive Date: 20220218
  Receipt Date: 20220218
  Transmission Date: 20220423
  Serious: Yes (Other)
  Sender: FDA-Public Use
  Company Number: IL-NOVOPROD-890452

PATIENT
  Sex: Female

DRUGS (2)
  1. NOVOSEVEN RT [Suspect]
     Active Substance: COAGULATION FACTOR VIIA RECOMBINANT HUMAN
     Indication: Prophylaxis
     Dosage: UNK(DOSE INCREASED)
     Route: 065
  2. NOVOSEVEN RT [Suspect]
     Active Substance: COAGULATION FACTOR VIIA RECOMBINANT HUMAN
     Indication: Factor VII deficiency
     Dosage: 30 ?G/KG, TIW
     Route: 065

REACTIONS (3)
  - Haemorrhage intracranial [Unknown]
  - Anti factor VII antibody positive [Unknown]
  - Off label use [Unknown]
